FAERS Safety Report 20200862 (Version 1)
Quarter: 2021Q4

REPORT INFORMATION
  Report Type: Spontaneous
  Country: US (occurrence: None)
  Receive Date: 20211217
  Receipt Date: 20211217
  Transmission Date: 20220303
  Serious: No
  Sender: FDA-Public Use
  Company Number: None

PATIENT

DRUGS (2)
  1. CARBOPROST TROMETHAMINE [Suspect]
     Active Substance: CARBOPROST TROMETHAMINE
     Route: 030
  2. METHYLERGONOVINE MALEATE [Suspect]
     Active Substance: METHYLERGONOVINE MALEATE

REACTIONS (2)
  - Product packaging confusion [None]
  - Intercepted product storage error [None]
